FAERS Safety Report 18098460 (Version 2)
Quarter: 2020Q3

REPORT INFORMATION
  Report Type: Spontaneous
  Country: DE (occurrence: DE)
  Receive Date: 20200731
  Receipt Date: 20200814
  Transmission Date: 20201103
  Serious: No
  Sender: FDA-Public Use
  Company Number: DE-GW PHARMA-202007DEGW02587

PATIENT

DRUGS (5)
  1. AMISULPRID [Concomitant]
     Active Substance: AMISULPRIDE
     Dosage: EVERY 7 HOURS
     Route: 065
     Dates: start: 2020
  2. PRAMIPEXOL [PRAMIPEXOLE DIHYDROCHLORIDE] [Concomitant]
     Indication: PRODUCT USED FOR UNKNOWN INDICATION
     Dosage: UNK
     Route: 065
  3. TRAMADOL. [Concomitant]
     Active Substance: TRAMADOL
     Indication: PRODUCT USED FOR UNKNOWN INDICATION
     Dosage: UNK
     Route: 065
  4. EPIDIOLEX [Suspect]
     Active Substance: CANNABIDIOL
     Indication: SCHIZOPHRENIA
     Dosage: 200 MILLIGRAM, Q2H (800 ?1000 MG/DAY)
     Route: 048
     Dates: start: 202003
  5. AMISULPRID [Concomitant]
     Active Substance: AMISULPRIDE
     Indication: SCHIZOPHRENIA
     Dosage: EVERY 2 HOURS
     Route: 065
     Dates: end: 2020

REACTIONS (4)
  - Drug effective for unapproved indication [Not Recovered/Not Resolved]
  - Headache [Unknown]
  - Diarrhoea [Recovered/Resolved]
  - Product use in unapproved indication [Not Recovered/Not Resolved]

NARRATIVE: CASE EVENT DATE: 2020
